FAERS Safety Report 25023909 (Version 1)
Quarter: 2025Q1

REPORT INFORMATION
  Report Type: Spontaneous
  Country: US (occurrence: None)
  Receive Date: 20250228
  Receipt Date: 20250228
  Transmission Date: 20250408
  Serious: Yes (Hospitalization)
  Sender: FDA-CTU
  Company Number: None

PATIENT
  Age: 52 Year
  Sex: Male
  Weight: 79 kg

DRUGS (1)
  1. ALLOPURINOL [Suspect]
     Active Substance: ALLOPURINOL
     Indication: Gout

REACTIONS (6)
  - Blister [None]
  - Tonic clonic movements [None]
  - Weight decreased [None]
  - Treatment noncompliance [None]
  - Dermatitis atopic [None]
  - Diarrhoea [None]

NARRATIVE: CASE EVENT DATE: 20240823
